FAERS Safety Report 25899971 (Version 1)
Quarter: 2025Q4

REPORT INFORMATION
  Report Type: Spontaneous
  Country: RU (occurrence: RU)
  Receive Date: 20251009
  Receipt Date: 20251009
  Transmission Date: 20260118
  Serious: Yes (Life-Threatening)
  Sender: ASTELLAS
  Company Number: RU-ASTELLAS-2025-AER-055450

PATIENT
  Age: 17 Year
  Sex: Male
  Weight: 74 kg

DRUGS (2)
  1. TACROLIMUS [Suspect]
     Active Substance: TACROLIMUS
     Indication: Heart transplant
     Dosage: PROLONGED RELEASE CAPSULES
     Route: 048
     Dates: start: 20241205, end: 20241215
  2. TACROLIMUS [Suspect]
     Active Substance: TACROLIMUS
     Indication: Heart transplant
     Route: 065
     Dates: start: 20250210, end: 20250220

REACTIONS (1)
  - Drug ineffective [Recovering/Resolving]
